FAERS Safety Report 6085483-6 (Version None)
Quarter: 2009Q1

REPORT INFORMATION
  Report Type: 
  Country: None (occurrence: None)
  Receive Date: 20090220
  Receipt Date: 20090213
  Transmission Date: 20090719
  Serious: Yes (Death, Hospitalization, Other)
  Sender: FDA-Public Use
  Company Number: SE-AMGEN-UK324496

PATIENT
  Sex: Male
  Weight: 72 kg

DRUGS (3)
  1. VECTIBIX [Suspect]
     Indication: COLORECTAL CANCER
     Route: 042
     Dates: start: 20081202, end: 20081216
  2. VENOFER [Concomitant]
     Route: 042
     Dates: start: 20081205, end: 20081223
  3. MORPHINE [Concomitant]
     Route: 048
     Dates: start: 20081212

REACTIONS (15)
  - BLOOD PRESSURE INCREASED [None]
  - CHILLS [None]
  - DEATH [None]
  - DRUG HYPERSENSITIVITY [None]
  - DYSPNOEA [None]
  - FLUSHING [None]
  - HEART RATE INCREASED [None]
  - INFUSION RELATED REACTION [None]
  - INFUSION SITE ERYTHEMA [None]
  - INFUSION SITE HYPERSENSITIVITY [None]
  - PALLOR [None]
  - PYREXIA [None]
  - RASH [None]
  - SINUS TACHYCARDIA [None]
  - TREMOR [None]
